FAERS Safety Report 20370027 (Version 1)
Quarter: 2022Q1

REPORT INFORMATION
  Report Type: Spontaneous
  Country: UA (occurrence: UA)
  Receive Date: 20220124
  Receipt Date: 20220124
  Transmission Date: 20220424
  Serious: Yes (Other)
  Sender: FDA-Public Use
  Company Number: UA-BAYER-2022A006856

PATIENT
  Age: 57 Year
  Sex: Male

DRUGS (1)
  1. AVELOX [Suspect]
     Active Substance: MOXIFLOXACIN HYDROCHLORIDE
     Dosage: 400 MG
     Route: 042
     Dates: start: 202103

REACTIONS (6)
  - Pulmonary embolism [None]
  - Myocarditis [None]
  - Cataract [None]
  - Arteriosclerotic retinopathy [None]
  - Blepharitis [None]
  - Bundle branch block right [None]
